FAERS Safety Report 20472920 (Version 2)
Quarter: 2022Q3

REPORT INFORMATION
  Report Type: Spontaneous
  Country: US (occurrence: US)
  Receive Date: 20220215
  Receipt Date: 20220805
  Transmission Date: 20221027
  Serious: Yes (Other)
  Sender: FDA-Public Use
  Company Number: US-GILEAD-2022-0569537

PATIENT
  Sex: Male
  Weight: 79.378 kg

DRUGS (39)
  1. ATRIPLA [Suspect]
     Active Substance: EFAVIRENZ\EMTRICITABINE\TENOFOVIR DISOPROXIL FUMARATE
     Indication: HIV infection
     Dosage: UNK
     Route: 048
     Dates: start: 2006
  2. ATRIPLA [Suspect]
     Active Substance: EFAVIRENZ\EMTRICITABINE\TENOFOVIR DISOPROXIL FUMARATE
     Dosage: UNK
     Route: 048
     Dates: start: 2010, end: 2018
  3. TRUVADA [Suspect]
     Active Substance: EMTRICITABINE\TENOFOVIR DISOPROXIL FUMARATE
     Indication: HIV infection
     Dosage: UNK
     Route: 048
     Dates: start: 2006, end: 2010
  4. GENVOYA [Concomitant]
     Active Substance: COBICISTAT\ELVITEGRAVIR\EMTRICITABINE\TENOFOVIR ALAFENAMIDE FUMARATE
  5. SUSTIVA [Concomitant]
     Active Substance: EFAVIRENZ
  6. TRAMADOL [Concomitant]
     Active Substance: TRAMADOL
  7. FENTANYL [Concomitant]
     Active Substance: FENTANYL
  8. TESTOSTERONE [Concomitant]
     Active Substance: TESTOSTERONE
  9. INDOMETHACIN [Concomitant]
     Active Substance: INDOMETHACIN
  10. PRAVASTATIN [Concomitant]
     Active Substance: PRAVASTATIN
  11. NIACIN [Concomitant]
     Active Substance: NIACIN
  12. ANDRODERM [Concomitant]
     Active Substance: TESTOSTERONE
  13. TADALAFIL [Concomitant]
     Active Substance: TADALAFIL
  14. GABAPENTIN [Concomitant]
     Active Substance: GABAPENTIN
  15. VITAMIN C [Concomitant]
     Active Substance: ASCORBIC ACID
  16. VITAMIN D NOS [Concomitant]
     Active Substance: VITAMIN D NOS
  17. ZINC [Concomitant]
     Active Substance: ZINC
  18. DONEPEZIL [Concomitant]
     Active Substance: DONEPEZIL
  19. MECLIZINE [Concomitant]
     Active Substance: MECLIZINE HYDROCHLORIDE
  20. TEMAZEPAM [Concomitant]
     Active Substance: TEMAZEPAM
  21. MIDODRINE [Concomitant]
     Active Substance: MIDODRINE
  22. BACLOFEN [Concomitant]
     Active Substance: BACLOFEN
  23. CIPROFLOXACIN [Concomitant]
     Active Substance: CIPROFLOXACIN
  24. IBUPROFEN [Concomitant]
     Active Substance: IBUPROFEN
  25. AZITHROMYCIN [Concomitant]
     Active Substance: AZITHROMYCIN
  26. DEXAMETHASONE [Concomitant]
     Active Substance: DEXAMETHASONE
  27. CEFDINIR [Concomitant]
     Active Substance: CEFDINIR
  28. NAPROXEN [Concomitant]
     Active Substance: NAPROXEN
  29. HYDROCODONE [Concomitant]
     Active Substance: HYDROCODONE
  30. AMOXICILLIN [Concomitant]
     Active Substance: AMOXICILLIN
  31. LEVOFLOXACIN [Concomitant]
     Active Substance: LEVOFLOXACIN
  32. PENICILLIN [Concomitant]
     Active Substance: PENICILLIN
  33. LINDANE [Concomitant]
     Active Substance: LINDANE
  34. ATORVASTATIN [Concomitant]
     Active Substance: ATORVASTATIN
  35. LOVAZA [Concomitant]
     Active Substance: OMEGA-3-ACID ETHYL ESTERS
  36. ZOLPIDEM [Concomitant]
     Active Substance: ZOLPIDEM TARTRATE
  37. PREDNISONE [Concomitant]
     Active Substance: PREDNISONE
  38. LEVAQUIN [Concomitant]
     Active Substance: LEVOFLOXACIN
  39. SODIUM CHLORIDE [Concomitant]
     Active Substance: SODIUM CHLORIDE

REACTIONS (10)
  - Renal impairment [Not Recovered/Not Resolved]
  - Pain [Not Recovered/Not Resolved]
  - Emotional distress [Not Recovered/Not Resolved]
  - Anxiety [Not Recovered/Not Resolved]
  - Anhedonia [Not Recovered/Not Resolved]
  - Haematuria [Unknown]
  - Hypotension [Unknown]
  - Urinary tract disorder [Unknown]
  - Gait disturbance [Unknown]
  - Mobility decreased [Unknown]

NARRATIVE: CASE EVENT DATE: 20160101
